FAERS Safety Report 9849768 (Version 1)
Quarter: 2013Q4

REPORT INFORMATION
  Report Type: Spontaneous
  Country: US (occurrence: None)
  Receive Date: 20131226
  Receipt Date: 20131226
  Transmission Date: 20140711
  Serious: Yes (Other)
  Sender: FDA-Public Use
  Company Number: PHEH2012US019313

PATIENT
  Age: 43 Year
  Sex: Female
  Weight: 141 kg

DRUGS (8)
  1. AFINITOR (RAD) UNKNOWN [Suspect]
     Indication: BREAST CANCER
     Route: 048
     Dates: start: 20120820
  2. EXEMESTANE (EXEMESTANE) [Concomitant]
  3. ZOMETA (ZOLEDRONIC ACID) [Concomitant]
  4. LORAZEPAM (LORAZEPAM) [Concomitant]
  5. VITAMIN D (ERGOCALCIFEROL) [Concomitant]
  6. LOVAZA (OMEGA-3 ACID ETHYL ESTERS) [Concomitant]
  7. VITAMIN C (ASCORBIC ACID) [Concomitant]
  8. ASTRAGALUS GUMMIFER [Concomitant]

REACTIONS (2)
  - Dyspnoea [None]
  - Stomatitis [None]
